FAERS Safety Report 8767867 (Version 1)
Quarter: 2012Q4

REPORT INFORMATION
  Report Type: 
  Country: DE (occurrence: DE)
  Receive Date: 20120905
  Receipt Date: 20120905
  Transmission Date: 20130627
  Serious: Yes (Life-Threatening, Hospitalization)
  Sender: FDA-Public Use
  Company Number: GXKR2012DE002787

PATIENT

DRUGS (21)
  1. CLOZAPINE [Suspect]
     Dosage: 12.5 mg, QD
     Route: 048
     Dates: start: 20111118, end: 20111119
  2. CLOZAPINE [Suspect]
     Dosage: 25 mg, QD
     Route: 048
     Dates: start: 20111120, end: 20111121
  3. CLOZAPINE [Suspect]
     Dosage: 50 mg, QD
     Route: 048
     Dates: start: 20111122, end: 20111123
  4. CLOZAPINE [Suspect]
     Dosage: 75 mg, QD
     Route: 048
     Dates: start: 20111124, end: 20111125
  5. CLOZAPINE [Suspect]
     Dosage: 100 mg, QD
     Route: 048
     Dates: start: 20111126, end: 20111127
  6. CLOZAPINE [Suspect]
     Dosage: 150 mg, QD
     Route: 048
     Dates: start: 20111127, end: 20111129
  7. DIAZEPAM [Suspect]
     Dosage: 25 mg, QD
     Route: 048
     Dates: start: 20111012, end: 20111122
  8. DIAZEPAM [Suspect]
     Dosage: 20 mg, QD
     Route: 048
     Dates: start: 20111123, end: 20111125
  9. DIAZEPAM [Suspect]
     Dosage: 15 mg, QD
     Route: 048
     Dates: start: 20111126, end: 20111129
  10. LEVOTHYROXINE SODIUM [Suspect]
     Dosage: 100 mg, QD
     Route: 048
     Dates: start: 20111117
  11. HALDOL DECANOATE [Suspect]
     Dosage: 100 mg, QD
     Route: 030
     Dates: start: 20111125
  12. NEUROCIL [Suspect]
     Dosage: 50 mg, QD
     Route: 048
     Dates: start: 20111108, end: 20111116
  13. NEUROCIL [Suspect]
     Dosage: 100 mg, QD
     Route: 048
     Dates: start: 20111117
  14. ORFIRIL [Suspect]
     Dosage: 500 mg, QD
     Route: 048
     Dates: start: 20111017, end: 20111101
  15. ORFIRIL [Suspect]
     Dosage: 1000 mg, QD
     Route: 048
     Dates: start: 20111102, end: 20111125
  16. ORFIRIL [Suspect]
     Dosage: 1500 mg, QD
     Route: 048
     Dates: start: 20111126, end: 20111129
  17. ABILIFY [Suspect]
     Dosage: 15 mg, QD
     Route: 048
     Dates: start: 20111011, end: 20111012
  18. ABILIFY [Suspect]
     Dosage: 30 mg, QD
     Route: 048
     Dates: start: 20111013, end: 20111129
  19. BISOPROLOL [Concomitant]
     Dosage: 2.5 mg, QD
     Route: 048
     Dates: start: 2009
  20. LASIX [Concomitant]
     Dosage: 120 mg, QD
     Route: 048
     Dates: start: 2009
  21. CLEXANE [Concomitant]
     Dosage: 40 mg, QD
     Dates: start: 20111124

REACTIONS (6)
  - Pneumonia [Not Recovered/Not Resolved]
  - Tracheal obstruction [Unknown]
  - Dyspnoea [Unknown]
  - Oxygen saturation decreased [Unknown]
  - Salivary hypersecretion [None]
  - Respiratory depression [None]
